FAERS Safety Report 5799252-5 (Version None)
Quarter: 2008Q3

REPORT INFORMATION
  Report Type: 
  Country: None (occurrence: None)
  Receive Date: 20080702
  Receipt Date: 20080623
  Transmission Date: 20090109
  Serious: Yes (Hospitalization)
  Sender: FDA-Public Use
  Company Number: IT-PFIZER INC-2008049977

PATIENT
  Age: 83 Year
  Sex: Female

DRUGS (3)
  1. ALPROSTADIL [Suspect]
     Indication: SYSTEMIC SCLEROSIS
     Dosage: TEXT:6 NG/KG/MINUTE
     Route: 042
  2. ACETYLSALICYLIC ACID SRT [Concomitant]
  3. CALCIUM CHANNEL BLOCKERS [Concomitant]

REACTIONS (1)
  - MYOCARDIAL INFARCTION [None]
